FAERS Safety Report 5301093-X (Version None)
Quarter: 2007Q2

REPORT INFORMATION
  Report Type: 
  Country: None (occurrence: None)
  Receive Date: 20070418
  Receipt Date: 20070411
  Transmission Date: 20071010
  Serious: Yes (Death)
  Sender: FDA-Public Use
  Company Number: US-BOEHRINGER INGELHEIM GMBH, GERMANY-2007-DE-01925GD

PATIENT
  Age: 39 Year
  Sex: Female

DRUGS (10)
  1. OXAZEPAM [Suspect]
  2. PARACETAMOL [Suspect]
  3. DIAZEPAM [Suspect]
  4. LORAZEPAM [Suspect]
  5. DIPHENHYDRAMINE HCL [Suspect]
  6. CLONAZEPAM [Suspect]
  7. ATROPINE [Suspect]
  8. TOPIRAMATE [Suspect]
  9. CIPROFLOXACIN [Suspect]
  10. CHLORAL HYDRATE [Suspect]

REACTIONS (1)
  - DEATH [None]
